FAERS Safety Report 19967287 (Version 1)
Quarter: 2021Q4

REPORT INFORMATION
  Report Type: Spontaneous
  Country: US (occurrence: US)
  Receive Date: 20211014
  Receipt Date: 20211014
  Transmission Date: 20220304
  Serious: No
  Sender: FDA-Public Use
  Company Number: None

PATIENT
  Age: 54 Year
  Sex: Female
  Weight: 81.65 kg

DRUGS (1)
  1. INFLECTRA [Suspect]
     Active Substance: INFLIXIMAB-DYYB
     Indication: Rheumatoid arthritis
     Dosage: ?          OTHER FREQUENCY:WK0,2AND6ASDIR;
     Route: 042
     Dates: start: 202109

REACTIONS (3)
  - Suffocation feeling [None]
  - Abdominal pain upper [None]
  - Vomiting [None]
